FAERS Safety Report 8122917-7 (Version None)
Quarter: 2012Q1

REPORT INFORMATION
  Report Type: 
  Country: None (occurrence: None)
  Receive Date: 20120208
  Receipt Date: 20120130
  Transmission Date: 20120608
  Serious: Yes (Hospitalization)
  Sender: FDA-Public Use
  Company Number: PHHY2012IL008885

PATIENT
  Age: 87 Year
  Sex: Male

DRUGS (5)
  1. EXELON [Interacting]
     Indication: DEMENTIA ALZHEIMER'S TYPE
     Dosage: 9.5 MG\24H
     Route: 062
  2. DONEPEZIL HCL [Suspect]
     Dosage: 40 MG, PER DAY
     Route: 048
  3. MEMANTINE [Concomitant]
     Dosage: 10 MG, BID
  4. METFORMIN HCL [Concomitant]
     Indication: DIABETES MELLITUS
     Route: 048
  5. ALFUZOSIN HCL [Concomitant]
     Indication: BENIGN PROSTATIC HYPERPLASIA
     Route: 048

REACTIONS (3)
  - CONFUSIONAL STATE [None]
  - OVERDOSE [None]
  - DRUG DISPENSING ERROR [None]
